FAERS Safety Report 9978724 (Version 1)
Quarter: 2014Q1

REPORT INFORMATION
  Report Type: Report from Study
  Country: US (occurrence: US)
  Receive Date: 20140306
  Receipt Date: 20140306
  Transmission Date: 20141002
  Serious: No
  Sender: FDA-Public Use
  Company Number: US-ABBVIE-13P-163-1171669-00

PATIENT
  Age: 40 Year
  Sex: Female

DRUGS (4)
  1. HUMIRA [Suspect]
     Indication: CROHN^S DISEASE
     Dates: start: 20130919, end: 20131107
  2. IMURAN [Concomitant]
     Indication: CROHN^S DISEASE
  3. TYLENOL WITH CODEIN #3 [Concomitant]
     Indication: PAIN
  4. ENTOCORT [Concomitant]
     Indication: CROHN^S DISEASE

REACTIONS (6)
  - Malaise [Unknown]
  - Drug ineffective [Not Recovered/Not Resolved]
  - Crohn^s disease [Unknown]
  - Vomiting [Unknown]
  - Vesical fistula [Unknown]
  - Crohn^s disease [Unknown]
